FAERS Safety Report 7237585-6 (Version None)
Quarter: 2011Q1

REPORT INFORMATION
  Report Type: 
  Country: None (occurrence: None)
  Receive Date: 20110121
  Receipt Date: 20110113
  Transmission Date: 20110831
  Serious: Yes (Other)
  Sender: FDA-Public Use
  Company Number: US-SHIONOGI USA, INC-2011000003

PATIENT

DRUGS (2)
  1. ROBINUL FORTE [Suspect]
     Indication: PRODUCT USED FOR UNKNOWN INDICATION
     Dosage: 2 MG, BID
     Route: 048
     Dates: start: 20040101, end: 20100801
  2. ANTIHYPERTENSIVES [Interacting]

REACTIONS (6)
  - LUNG DISORDER [None]
  - DRUG INTERACTION [None]
  - HIATUS HERNIA [None]
  - TACHYCARDIA [None]
  - HYPERTENSION [None]
  - BRAIN SCAN ABNORMAL [None]
